FAERS Safety Report 16054004 (Version 4)
Quarter: 2019Q2

REPORT INFORMATION
  Report Type: Report from Study
  Country: CA (occurrence: CA)
  Receive Date: 20190308
  Receipt Date: 20190510
  Transmission Date: 20190711
  Serious: Yes (Hospitalization, Other)
  Sender: FDA-Public Use
  Company Number: CA-GILEAD-2018-0362786

PATIENT
  Age: 46 Year
  Sex: Male
  Weight: 76.7 kg

DRUGS (24)
  1. HYDROCODONE [Concomitant]
     Active Substance: HYDROCODONE
  2. ACYCLOVIR                          /00587301/ [Concomitant]
     Active Substance: ACYCLOVIR
     Dosage: UNK
  3. FISH OIL [Concomitant]
     Active Substance: FISH OIL
  4. CIPROFLOXACIN. [Concomitant]
     Active Substance: CIPROFLOXACIN
     Route: 048
  5. CYCLOPHOSPHAMIDE. [Suspect]
     Active Substance: CYCLOPHOSPHAMIDE
     Indication: BONE MARROW CONDITIONING REGIMEN
     Dosage: 985 MG, QD
     Route: 042
     Dates: start: 20181031, end: 20181102
  6. PREDNISONE. [Concomitant]
     Active Substance: PREDNISONE
     Indication: TUMOUR PAIN
     Dosage: 10 MG, QD
     Route: 048
     Dates: start: 20181020, end: 20181023
  7. PANTOPRAZOLE [Concomitant]
     Active Substance: PANTOPRAZOLE
  8. FLUCONAZOLE. [Concomitant]
     Active Substance: FLUCONAZOLE
  9. AXICABTAGENE CILOLEUCEL [Suspect]
     Active Substance: AXICABTAGENE CILOLEUCEL
     Indication: DIFFUSE LARGE B-CELL LYMPHOMA
     Dosage: 68 ML, ONCE
     Route: 042
     Dates: start: 20181105, end: 20181105
  10. CONCERTA [Concomitant]
     Active Substance: METHYLPHENIDATE HYDROCHLORIDE
     Dosage: UNK
  11. KEPPRA [Concomitant]
     Active Substance: LEVETIRACETAM
  12. PIPERACILLIN AND TAZOBACTAM [Concomitant]
     Active Substance: PIPERACILLIN SODIUM\TAZOBACTAM SODIUM
  13. NORMAL SALINE [Concomitant]
     Active Substance: SODIUM CHLORIDE
  14. PEG 3350 [Concomitant]
     Active Substance: POLYETHYLENE GLYCOL 3350
  15. ACETAMINOPHEN. [Concomitant]
     Active Substance: ACETAMINOPHEN
  16. FLUDARABINE [Suspect]
     Active Substance: FLUDARABINE PHOSPHATE
     Indication: BONE MARROW CONDITIONING REGIMEN
     Dosage: 59.1 MG, QD
     Route: 042
     Dates: start: 20181031, end: 20181102
  17. DEXAMETHASONE. [Suspect]
     Active Substance: DEXAMETHASONE
     Indication: CHEMOTHERAPY
     Dosage: 20 MG, BID
     Route: 048
     Dates: start: 20180927, end: 20180930
  18. TOLTERODINE [Concomitant]
     Active Substance: TOLTERODINE
  19. PREDNISONE. [Concomitant]
     Active Substance: PREDNISONE
     Indication: CHEMOTHERAPY
     Dosage: 10 MG, QD
     Route: 048
     Dates: start: 20181025, end: 20181030
  20. MULTIVITAMIN                       /00097801/ [Concomitant]
     Active Substance: VITAMINS
  21. SULFATRIM [Concomitant]
     Active Substance: SULFAMETHOXAZOLE\TRIMETHOPRIM
     Dosage: UNK
  22. ALLOPURINOL. [Concomitant]
     Active Substance: ALLOPURINOL
  23. METHYLPHENIDATE. [Concomitant]
     Active Substance: METHYLPHENIDATE
  24. SENOKOT [Concomitant]
     Active Substance: SENNOSIDES

REACTIONS (7)
  - CAR T-cell-related encephalopathy syndrome [Recovered/Resolved]
  - Bone marrow failure [Not Recovered/Not Resolved]
  - Cystitis haemorrhagic [Recovered/Resolved]
  - Pyrexia [Recovered/Resolved]
  - Adenovirus infection [Recovered/Resolved]
  - Haematuria [Not Recovered/Not Resolved]
  - Febrile neutropenia [Not Recovered/Not Resolved]

NARRATIVE: CASE EVENT DATE: 20181110
